APPROVED DRUG PRODUCT: ANSPOR
Active Ingredient: CEPHRADINE
Strength: 250MG
Dosage Form/Route: CAPSULE;ORAL
Application: A061859 | Product #001
Applicant: GLAXOSMITHKLINE
Approved: Approved Prior to Jan 1, 1982 | RLD: No | RS: No | Type: DISCN